FAERS Safety Report 9972816 (Version 2)
Quarter: 2014Q2

REPORT INFORMATION
  Report Type: Spontaneous
  Country: BE (occurrence: BE)
  Receive Date: 20140306
  Receipt Date: 20140414
  Transmission Date: 20141212
  Serious: Yes (Other)
  Sender: FDA-Public Use
  Company Number: BE-JNJFOC-20140214583

PATIENT
  Age: 54 Year
  Sex: Male
  Weight: 100 kg

DRUGS (9)
  1. ZYTIGA [Suspect]
     Indication: PRODUCT USED FOR UNKNOWN INDICATION
     Route: 048
     Dates: start: 20131213
  2. HUMULINE REGULAR [Concomitant]
     Route: 058
  3. METFORMINE [Concomitant]
     Route: 065
  4. ANAFRANIL [Concomitant]
     Route: 065
  5. DIFENIDOL [Concomitant]
     Route: 065
  6. FELODUR [Concomitant]
     Route: 065
  7. TRIAXONE [Concomitant]
     Route: 065
  8. OMEPRAZOLE [Concomitant]
     Route: 065
  9. SULEN [Concomitant]
     Route: 065

REACTIONS (1)
  - Pulmonary embolism [Unknown]
